FAERS Safety Report 9438253 (Version 1)
Quarter: 2013Q3

REPORT INFORMATION
  Report Type: Spontaneous
  Country: US (occurrence: US)
  Receive Date: 20130802
  Receipt Date: 20130802
  Transmission Date: 20140515
  Serious: Yes (Other)
  Sender: FDA-Public Use
  Company Number: US-BRISTOL-MYERS SQUIBB COMPANY-17408550

PATIENT
  Sex: Female

DRUGS (2)
  1. COUMADIN TABS [Suspect]
     Route: 048
  2. XARELTO [Suspect]
     Dosage: FILM COATED TABS
     Route: 048
     Dates: end: 201301

REACTIONS (1)
  - Epistaxis [Recovered/Resolved]
